FAERS Safety Report 11825347 (Version 1)
Quarter: 2015Q4

REPORT INFORMATION
  Report Type: Spontaneous
  Country: US (occurrence: US)
  Receive Date: 20151211
  Receipt Date: 20151211
  Transmission Date: 20160305
  Serious: No
  Sender: FDA-Public Use
  Company Number: US-009507513-1512USA002859

PATIENT
  Age: 63 Year
  Sex: Female

DRUGS (1)
  1. BELSOMRA [Suspect]
     Active Substance: SUVOREXANT
     Indication: INSOMNIA
     Dosage: UNKNOWN
     Route: 048
     Dates: start: 20151116, end: 20151120

REACTIONS (4)
  - Adverse reaction [Recovering/Resolving]
  - Feeling of despair [Recovering/Resolving]
  - Sleep terror [Recovering/Resolving]
  - Feeling abnormal [Recovering/Resolving]

NARRATIVE: CASE EVENT DATE: 20151116
